FAERS Safety Report 6831202-2 (Version None)
Quarter: 2010Q3

REPORT INFORMATION
  Report Type: 
  Country: None (occurrence: None)
  Receive Date: 20100712
  Receipt Date: 20100706
  Transmission Date: 20110219
  Serious: Yes (Life-Threatening)
  Sender: FDA-Public Use
  Company Number: GR-ASTRAZENECA-2010SE08207

PATIENT
  Age: 21601 Day
  Sex: Female
  Weight: 75 kg

DRUGS (4)
  1. NEXIUM IV [Suspect]
     Indication: GASTRITIS PROPHYLAXIS
     Route: 042
     Dates: start: 20100221, end: 20100221
  2. DILTIAZEM HCL [Concomitant]
     Indication: HYPERTENSION
     Route: 048
  3. BEROVENT [Concomitant]
     Indication: CHRONIC OBSTRUCTIVE PULMONARY DISEASE
     Route: 055
  4. PULMICORT TBH [Concomitant]
     Indication: CHRONIC OBSTRUCTIVE PULMONARY DISEASE
     Route: 055

REACTIONS (5)
  - ANAPHYLACTIC SHOCK [None]
  - BURNING SENSATION [None]
  - DYSPNOEA [None]
  - HYPERHIDROSIS [None]
  - TACHYPNOEA [None]
